FAERS Safety Report 18728715 (Version 1)
Quarter: 2021Q1

REPORT INFORMATION
  Report Type: Spontaneous
  Country: US (occurrence: US)
  Receive Date: 20210112
  Receipt Date: 20210112
  Transmission Date: 20210419
  Serious: Yes (Hospitalization)
  Sender: FDA-Public Use
  Company Number: US-ADAREPHARM-2020-US-000128

PATIENT
  Age: 22 Year
  Sex: Female

DRUGS (4)
  1. KCL [Suspect]
     Active Substance: POTASSIUM CHLORIDE
     Dosage: 30 MEQ BID
  2. SPIRONOLACTONE. [Concomitant]
     Active Substance: SPIRONOLACTONE
  3. AMILORIDE [Concomitant]
     Active Substance: AMILORIDE
  4. INDOMETHACIN. [Concomitant]
     Active Substance: INDOMETHACIN

REACTIONS (3)
  - Maternal exposure during pregnancy [Recovered/Resolved]
  - Hypokalaemia [Recovered/Resolved]
  - Maternal exposure during breast feeding [Unknown]
